FAERS Safety Report 9830417 (Version 1)
Quarter: 2014Q1

REPORT INFORMATION
  Report Type: Spontaneous
  Country: US (occurrence: US)
  Receive Date: 20140120
  Receipt Date: 20140120
  Transmission Date: 20141002
  Serious: Yes (Hospitalization)
  Sender: FDA-Public Use
  Company Number: US-BAYER-2014-008200

PATIENT
  Age: 43 Year
  Sex: Female
  Weight: 93.88 kg

DRUGS (29)
  1. YAZ [Suspect]
  2. BIOTIN [Concomitant]
     Dosage: ONE TIME DAILY
     Route: 048
     Dates: start: 20081222
  3. BROMELAINS [Concomitant]
     Dosage: 1000 MG, DAILY
     Route: 048
     Dates: start: 20081222
  4. LISINOPRIL [Concomitant]
     Dosage: 10 MG, UNK
     Route: 048
     Dates: start: 20081222
  5. MILK THISTLE [Concomitant]
     Dosage: 1200 MG, DAILY
     Route: 048
     Dates: start: 20081222
  6. VITAMIN B COMPLEX [Concomitant]
     Dosage: UNK
     Route: 048
     Dates: start: 20081222
  7. VITAMIN D [Concomitant]
     Dosage: DAILY
     Route: 048
     Dates: start: 20081222
  8. FENTANYL [Concomitant]
     Dosage: UNK
     Dates: start: 20090203
  9. PROPOFOL [Concomitant]
     Dosage: UNK
     Dates: start: 20090203
  10. MIDAZOLAM [Concomitant]
     Dosage: UNK
     Dates: start: 20090203
  11. INSULIN [Concomitant]
     Dosage: UNK
     Dates: start: 20090203
  12. NITROGLYCERINE [Concomitant]
     Dosage: UNK
     Dates: start: 20090203
  13. PROTAMINE [Concomitant]
     Dosage: UNK
     Dates: start: 20090203
  14. LIDOCAINE [Concomitant]
     Dosage: UNK
     Dates: start: 20090203
  15. ROCURONIUM [Concomitant]
     Dosage: UNK
     Dates: start: 20090203
  16. VECURONIUM [Concomitant]
     Dosage: UNK
     Dates: start: 20090203
  17. AMICAR [Concomitant]
     Dosage: UNK
     Dates: start: 20090203
  18. CEFUROXIME [Concomitant]
     Dosage: UNK
     Dates: start: 20090203
  19. SOLU-MEDROL [Concomitant]
     Dosage: 500 MG, UNK
     Dates: start: 20090203
  20. KCL [Concomitant]
     Dosage: UNK
     Dates: start: 20090203
  21. SODIUM BICARBONATE [Concomitant]
     Dosage: UNK
     Dates: start: 20090203
  22. MAGNESIUM SULFATE [Concomitant]
     Dosage: UNK
     Dates: start: 20090203
  23. VALSARTAN [Concomitant]
     Dosage: 40 MG, UNK
     Route: 048
     Dates: start: 20090207
  24. METOPROLOL [Concomitant]
     Dosage: 25 MG, DAILY
     Route: 048
     Dates: start: 20090207
  25. PERCOCET [Concomitant]
     Indication: PAIN
     Dosage: TO 2 Q (INTERPRETED AS EVERY) 4 H (INTERPRETED AS HOURS) PRN
     Route: 048
     Dates: start: 20090207
  26. PERCOCET [Concomitant]
     Indication: PAIN
     Dosage: 5-325 MG EVERY 6 HOURS AS NEEDED
     Dates: start: 20090216
  27. SENNA [Concomitant]
     Indication: CONSTIPATION
     Dosage: 1 TO 4 TABLETS DAILY PRN
     Dates: start: 20090207
  28. MOTRIN [Concomitant]
     Dosage: 600 MG, TID
     Dates: start: 20090216
  29. ROBAXIN [Concomitant]
     Dosage: 500 MG, 3 TIMES DAILY
     Route: 048
     Dates: start: 20090216

REACTIONS (1)
  - Pulmonary embolism [None]
